FAERS Safety Report 4583070-X (Version None)
Quarter: 2005Q1

REPORT INFORMATION
  Report Type: 
  Country: None (occurrence: None)
  Receive Date: 20050125
  Receipt Date: 20041004
  Transmission Date: 20050727
  Serious: No
  Sender: FDA-Public Use
  Company Number: USA041080085

PATIENT
  Age: 81 Year
  Sex: Female

DRUGS (6)
  1. FORTEO [Suspect]
     Indication: OSTEOPOROSIS
     Dosage: 20 UG/1 DAY
     Dates: start: 20040625
  2. GLUCOSAMINE CHONDROITIN [Concomitant]
  3. LIPITOR [Concomitant]
  4. SLO-BID [Concomitant]
  5. COMBIVENT [Concomitant]
  6. FOSAMAX [Concomitant]

REACTIONS (3)
  - ARTHRALGIA [None]
  - BONE PAIN [None]
  - POLLAKIURIA [None]
